FAERS Safety Report 18043371 (Version 2)
Quarter: 2020Q3

REPORT INFORMATION
  Report Type: Report from Study
  Country: MX (occurrence: MX)
  Receive Date: 20200720
  Receipt Date: 20200724
  Transmission Date: 20201103
  Serious: No
  Sender: FDA-Public Use
  Company Number: MX-UCBSA-2020027947

PATIENT
  Sex: Male
  Weight: 46 kg

DRUGS (1)
  1. BRIVARACETAM [Suspect]
     Active Substance: BRIVARACETAM
     Indication: SEIZURE
     Dosage: 5 MILLIGRAM, 3X/DAY (TID)
     Dates: start: 2017

REACTIONS (4)
  - Underdose [Unknown]
  - Drug ineffective [Unknown]
  - Off label use [Unknown]
  - Salivary hypersecretion [Recovering/Resolving]

NARRATIVE: CASE EVENT DATE: 2017
